FAERS Safety Report 16408476 (Version 1)
Quarter: 2019Q2

REPORT INFORMATION
  Report Type: Spontaneous
  Country: DE (occurrence: DE)
  Receive Date: 20190610
  Receipt Date: 20190610
  Transmission Date: 20190711
  Serious: Yes (Hospitalization)
  Sender: FDA-Public Use
  Company Number: DE-SUN PHARMACEUTICAL INDUSTRIES LTD-2019RR-210054

PATIENT
  Age: 17 Year
  Sex: Female
  Weight: 50 kg

DRUGS (1)
  1. ISOTRETINOIN. [Suspect]
     Active Substance: ISOTRETINOIN
     Indication: ACNE CONGLOBATA
     Dosage: 20 MG, UNK
     Route: 048
     Dates: start: 20181106, end: 20190404

REACTIONS (4)
  - Wheelchair user [Recovering/Resolving]
  - Muscle spasms [Recovering/Resolving]
  - Gait inability [Recovering/Resolving]
  - Myalgia [Recovering/Resolving]

NARRATIVE: CASE EVENT DATE: 201903
